FAERS Safety Report 7801428-X (Version None)
Quarter: 2011Q4

REPORT INFORMATION
  Report Type: 
  Country: None (occurrence: None)
  Receive Date: 20111005
  Receipt Date: 20110921
  Transmission Date: 20120403
  Serious: Yes (Death)
  Sender: FDA-Public Use
  Company Number: 1000024322

PATIENT
  Age: 30 Year
  Sex: Male

DRUGS (5)
  1. RANITIDINE HYDROCHLORIDE [Suspect]
     Dosage: 150 MG (150 MG, 1 IN 1 D)
  2. CLOZARIL [Suspect]
     Dosage: 500 MG (500 MG, 1 IN 1 D), ORAL
     Route: 048
     Dates: start: 20000401, end: 20010621
  3. CLONIDINE HCL [Suspect]
     Dosage: 300 MCG (300 MCG, 1 IN 1 D)
  4. CITALOPRAM HYDROBROMIDE [Suspect]
     Dosage: 40 MG (40 MG, 1 IN 1 D)
  5. ALOCHOL (ETHANOL) [Suspect]

REACTIONS (1)
  - SUDDEN DEATH [None]
